FAERS Safety Report 4675040-8 (Version None)
Quarter: 2005Q2

REPORT INFORMATION
  Report Type: 
  Country: None (occurrence: None)
  Receive Date: 20050525
  Receipt Date: 20050510
  Transmission Date: 20051028
  Serious: Yes (Other)
  Sender: FDA-Public Use
  Company Number: 8010504

PATIENT
  Age: 29 Year
  Sex: Female

DRUGS (7)
  1. KEPPRA [Suspect]
     Indication: EPILEPSY
     Dosage: 500 MG /D PO
     Route: 048
     Dates: start: 20050101
  2. KEPPRA [Suspect]
     Indication: EPILEPSY
     Dosage: 1000 MG D/ PO
     Route: 048
     Dates: start: 20050101, end: 20050501
  3. KEPPRA [Suspect]
     Indication: EPILEPSY
     Dosage: /D PO
     Route: 048
     Dates: start: 20050501, end: 20050512
  4. LAMOTRIGINE [Suspect]
     Indication: EPILEPSY
     Dosage: 400 MG /D PO
     Route: 048
  5. ZARONTIN [Suspect]
     Indication: EPILEPSY
     Dosage: 500 MG /D PO
     Route: 048
  6. FOLIC ACID [Concomitant]
  7. PRENATAL VITAMINS [Concomitant]

REACTIONS (4)
  - ABORTION SPONTANEOUS [None]
  - AGGRESSION [None]
  - DRUG EXPOSURE DURING PREGNANCY [None]
  - PREGNANCY [None]
